FAERS Safety Report 4885943-7 (Version None)
Quarter: 2006Q1

REPORT INFORMATION
  Report Type: 
  Country: None (occurrence: None)
  Receive Date: 20060118
  Receipt Date: 20060118
  Transmission Date: 20060701
  Serious: Yes (Hospitalization)
  Sender: FDA-Public Use
  Company Number: None

PATIENT
  Age: 71 Year
  Sex: Female
  Weight: 87.0906 kg

DRUGS (11)
  1. HYALGAN -R- 500.000-730,000 DALTONS 2 ML FIDIA PHARMACEUTICAL CORP [Suspect]
     Indication: OSTEOARTHRITIS
     Dosage: 2 ML 1 INJECTION QWK X 3 INTRA-ARTICULAR
     Route: 014
     Dates: start: 20050407, end: 20051118
  2. ACCUPRIL [Concomitant]
  3. MIRAPEX [Concomitant]
  4. ECOTRIN [Concomitant]
  5. ACTONEL [Concomitant]
  6. AMBIEN [Concomitant]
  7. NEXIUM [Concomitant]
  8. ZANTAC [Concomitant]
  9. SPRIONOLACTONE [Concomitant]
  10. MOBIC [Concomitant]
  11. DARVOCET [Concomitant]

REACTIONS (1)
  - INTESTINAL OBSTRUCTION [None]
